FAERS Safety Report 5431108-X (Version None)
Quarter: 2007Q3

REPORT INFORMATION
  Report Type: 
  Country: None (occurrence: None)
  Receive Date: 20070830
  Receipt Date: 20070215
  Transmission Date: 20080115
  Serious: No
  Sender: FDA-Public Use
  Company Number: A0639741A

PATIENT
  Sex: Female

DRUGS (2)
  1. WELLBUTRIN [Suspect]
     Route: 048
  2. PAIN MEDICATIONS [Concomitant]

REACTIONS (4)
  - CONSTIPATION [None]
  - CRYING [None]
  - DECREASED APPETITE [None]
  - EMOTIONAL DISORDER [None]
